FAERS Safety Report 12628728 (Version 1)
Quarter: 2016Q3

REPORT INFORMATION
  Report Type: Spontaneous
  Country: US (occurrence: None)
  Receive Date: 20160805
  Receipt Date: 20160805
  Transmission Date: 20161109
  Serious: Yes (Life-Threatening, Disabling)
  Sender: FDA-Public Use
  Company Number: None

PATIENT
  Age: 58 Year
  Sex: Female
  Weight: 99.79 kg

DRUGS (11)
  1. HYDROCHLOROTHIAZIDE. [Concomitant]
     Active Substance: HYDROCHLOROTHIAZIDE
  2. ASPIRIN. [Concomitant]
     Active Substance: ASPIRIN
  3. SYNTHROID [Concomitant]
     Active Substance: LEVOTHYROXINE SODIUM
  4. SERTRALINE [Concomitant]
     Active Substance: SERTRALINE HYDROCHLORIDE
  5. QUETIAPINE FUMARATE. [Concomitant]
     Active Substance: QUETIAPINE FUMARATE
  6. OXYBUTYNIN [Concomitant]
     Active Substance: OXYBUTYNIN
  7. TABAVITE VITAMIN [Concomitant]
  8. KEPPRA [Concomitant]
     Active Substance: LEVETIRACETAM
  9. RANITIDINE. [Concomitant]
     Active Substance: RANITIDINE
  10. PHENYTOIN. [Suspect]
     Active Substance: PHENYTOIN
     Indication: SEIZURE
     Route: 048
     Dates: end: 20110502
  11. IRON FERROUS SULFATE [Concomitant]

REACTIONS (11)
  - Anxiety [None]
  - Memory impairment [None]
  - Dental caries [None]
  - Back pain [None]
  - Hypothyroidism [None]
  - Hyperthyroidism [None]
  - Disturbance in attention [None]
  - Hepatitis C [None]
  - Fatigue [None]
  - Hypertension [None]
  - Toxicity to various agents [None]
